FAERS Safety Report 5599299-8 (Version None)
Quarter: 2008Q1

REPORT INFORMATION
  Report Type: 
  Country: None (occurrence: None)
  Receive Date: 20080117
  Receipt Date: 20080108
  Transmission Date: 20080703
  Serious: Yes (Death, Hospitalization, Other)
  Sender: FDA-Public Use
  Company Number: 18161

PATIENT
  Age: 83 Year
  Sex: Male

DRUGS (4)
  1. LEUCOVORIN CALCIUM [Suspect]
     Indication: METASTATIC GASTRIC CANCER
     Dosage: 100 MG/M2 FORTNIGHTLY
  2. FLUOROURACIL [Suspect]
     Indication: METASTATIC GASTRIC CANCER
     Dosage: 400 MG/M2 FORTNIGHTLY IV
     Route: 042
  3. FLUOROURACIL [Suspect]
     Indication: METASTATIC GASTRIC CANCER
     Dosage: 600 MG/M2 FORTNIGHTLY OTHER
     Route: 050
  4. IRINOTECAN [Suspect]
     Indication: METASTATIC GASTRIC CANCER
     Dosage: 180 MG/M2 FORTNIGHTLY

REACTIONS (3)
  - FEBRILE NEUTROPENIA [None]
  - INFECTION [None]
  - SEPSIS [None]
